FAERS Safety Report 8924454 (Version 1)
Quarter: 2012Q4

REPORT INFORMATION
  Report Type: Spontaneous
  Country: US (occurrence: None)
  Receive Date: 20121121
  Receipt Date: 20121121
  Transmission Date: 20130627
  Serious: Yes (Other)
  Sender: FDA-Public Use
  Company Number: None

PATIENT
  Sex: Male

DRUGS (1)
  1. SPRYCEL [Suspect]
     Indication: CANCER
     Dosage: Sprycel 100 mg oral
     Route: 048
     Dates: end: 20121116

REACTIONS (5)
  - Dyspnoea [None]
  - Chest discomfort [None]
  - Sensation of pressure [None]
  - Headache [None]
  - Condition aggravated [None]
